FAERS Safety Report 20679087 (Version 1)
Quarter: 2022Q2

REPORT INFORMATION
  Report Type: Spontaneous
  Country: IN (occurrence: IN)
  Receive Date: 20220406
  Receipt Date: 20220406
  Transmission Date: 20220721
  Serious: Yes (Hospitalization, Other)
  Sender: FDA-Public Use
  Company Number: IN-NOVARTISPH-NVSC2020IN221802

PATIENT
  Age: 35 Year
  Sex: Male

DRUGS (103)
  1. SIMULECT [Suspect]
     Active Substance: BASILIXIMAB
     Indication: Renal transplant
     Dosage: 20 MG, UNKNOWN
     Route: 042
     Dates: start: 20200702, end: 20200706
  2. SIMULECT [Suspect]
     Active Substance: BASILIXIMAB
     Dosage: 20 MG/1 VIAL VIA STST (ONE TIME ONLY)QD (CONC:20 MG)
     Route: 042
  3. AMTAS [Concomitant]
     Indication: Product used for unknown indication
     Dosage: UNK UNK, BID (CONC :10MG)
     Route: 065
  4. AMTAS [Concomitant]
     Dosage: (CONC : 5/25 MG ONCE DAILY IN MORNING)
     Route: 065
  5. AMTAS [Concomitant]
     Dosage: (CONC: 5 MG ONCE DAILY IN EVENING)
     Route: 065
  6. AMTAS [Concomitant]
     Dosage: (CONC: 10 MG TWICE 8AM AND 8PM)
     Route: 065
  7. ARKAMIN [Concomitant]
     Indication: Product used for unknown indication
     Dosage: CONC 0.1,  QD
     Route: 048
  8. ARKAMIN [Concomitant]
     Dosage: 200 UG, Q8H (6,14 AND 22 HRS)(CONC 100MCG)
     Route: 048
  9. ARKAMIN [Concomitant]
     Dosage: 2 DOSAGE FORM (1*30 CONC 100 MCG)
     Route: 048
  10. ARKAMIN [Concomitant]
     Dosage: 1 DOSAGE FORM, TID (6,14,22 HRS CONC:100 MCG)
     Route: 048
  11. PRAZOSIN HYDROCHLORIDE [Concomitant]
     Active Substance: PRAZOSIN HYDROCHLORIDE
     Indication: Product used for unknown indication
     Dosage: UNK UNK, BID
     Route: 065
  12. TORSEMIDE [Concomitant]
     Active Substance: TORSEMIDE
     Indication: Product used for unknown indication
     Dosage: UNK, BID
     Route: 065
  13. OFRAMAX FORTE [Concomitant]
     Indication: Product used for unknown indication
     Dosage: UNK, BID (CONC:1.5 GM)
     Route: 042
  14. LEVOFLOXACIN [Concomitant]
     Active Substance: LEVOFLOXACIN
     Indication: Product used for unknown indication
     Dosage: UNK, QD
     Route: 042
  15. TRAMADOL [Concomitant]
     Active Substance: TRAMADOL
     Indication: Product used for unknown indication
     Dosage: UNK, TID
     Route: 042
  16. ONDANSETRON HYDROCHLORIDE [Concomitant]
     Active Substance: ONDANSETRON HYDROCHLORIDE
     Indication: Product used for unknown indication
     Dosage: UNK, TID
     Route: 042
  17. FEVASTIN [Concomitant]
     Indication: Product used for unknown indication
     Dosage: UNK, TID
     Route: 042
  18. METOCLOPRAMIDE HYDROCHLORIDE [Concomitant]
     Active Substance: METOCLOPRAMIDE HYDROCHLORIDE
     Indication: Product used for unknown indication
     Dosage: UNK, BID (CONC:10MG)
     Route: 042
  19. METOCLOPRAMIDE HYDROCHLORIDE [Concomitant]
     Active Substance: METOCLOPRAMIDE HYDROCHLORIDE
     Dosage: 2 ML, BID (08 AND 20HRS) (CONC:2ML)
     Route: 042
  20. CALCIUM GLUCONATE [Concomitant]
     Active Substance: CALCIUM GLUCONATE
     Indication: Product used for unknown indication
     Dosage: CONC:10 ML BID (6AM -6PM)
     Route: 042
  21. PAN [Concomitant]
     Indication: Product used for unknown indication
     Dosage: UNK, QD
     Route: 042
  22. PAN [Concomitant]
     Dosage: UNK (1 VIAL)
     Route: 042
  23. PAN [Concomitant]
     Dosage: UNK, Q24H (14HRS)
     Route: 042
  24. TACROLIMUS [Concomitant]
     Active Substance: TACROLIMUS
     Indication: Product used for unknown indication
     Dosage: UNK (AS PER PHYSICIANS ORDER)
     Route: 065
  25. TACROLIMUS [Concomitant]
     Active Substance: TACROLIMUS
     Dosage: UNK, BID (7AM 7 PM BEFORE MEALS) (CONC: 4MG)
     Route: 065
  26. MYCOPHENOLATE MOFETIL [Concomitant]
     Active Substance: MYCOPHENOLATE MOFETIL
     Indication: Product used for unknown indication
     Dosage: UNK (AS PER PHYSICIAN) (CONC:360 MG)
     Route: 048
  27. MYCOPHENOLATE MOFETIL [Concomitant]
     Active Substance: MYCOPHENOLATE MOFETIL
     Dosage: UNK  (CONC: 720 MG)(7 AM AND 7PM)
     Route: 048
  28. SOLU-MEDROL [Concomitant]
     Active Substance: METHYLPREDNISOLONE SODIUM SUCCINATE
     Indication: Product used for unknown indication
     Dosage: UNK, QD (9AM FOR 2 DAYS START FROM POST DAY 1 PC ENEMA POST OPERATIVE DAY 2)(CONC:250MG)
     Route: 042
  29. SOLU-MEDROL [Concomitant]
     Active Substance: METHYLPREDNISOLONE SODIUM SUCCINATE
     Dosage: 500MG/1VIAL STAT (CONC: 500MG)
     Route: 042
  30. SOLU-MEDROL [Concomitant]
     Active Substance: METHYLPREDNISOLONE SODIUM SUCCINATE
     Dosage: 2ML AMP INJ,250 MG (CONC:125MG/2ML)
     Route: 042
  31. DEXTROSE [Concomitant]
     Active Substance: DEXTROSE
     Indication: Product used for unknown indication
     Dosage: UNK
     Route: 065
  32. ACETAMINOPHEN [Concomitant]
     Active Substance: ACETAMINOPHEN
     Indication: Product used for unknown indication
     Dosage: 2 ML, QD (UD AMP, 900 MG IM STAT)(CONC :150 MG/ML)
     Route: 042
  33. ACETAMINOPHEN [Concomitant]
     Active Substance: ACETAMINOPHEN
     Dosage: 2 ML, Q8H (UD AMP, 900 MG IM STAT)(CONC :150 MG/ML)
     Route: 042
  34. ACETAMINOPHEN [Concomitant]
     Active Substance: ACETAMINOPHEN
     Dosage: 2 ML,(UD AMP, 150MG/ML 3 AMP)(CONC :150 MG/ML)
     Route: 042
  35. MYCOPHENOLATE SODIUM [Concomitant]
     Active Substance: MYCOPHENOLATE SODIUM
     Indication: Product used for unknown indication
     Dosage: 2 DOSAGE FORM, BID (08 AND 20 HRS) (CONC:360 MG)
     Route: 048
  36. MYCOPHENOLATE SODIUM [Concomitant]
     Active Substance: MYCOPHENOLATE SODIUM
     Dosage: 720 MG, BID (08 AND 20 HRS) (CONC:360 MG)
     Route: 048
  37. MYCOPHENOLATE SODIUM [Concomitant]
     Active Substance: MYCOPHENOLATE SODIUM
     Dosage: UNK, BID (9AM AND 9PM AFTER MEALS CONC:360 MG)
     Route: 048
  38. PREDNISOLONE [Concomitant]
     Active Substance: PREDNISOLONE
     Indication: Product used for unknown indication
     Dosage: 25 MG, QD (10 HRS) (CONC:20MG)
     Route: 048
  39. PREDNISOLONE [Concomitant]
     Active Substance: PREDNISOLONE
     Dosage: 20 MG (CONC:20MG)
     Route: 048
  40. PREDNISOLONE [Concomitant]
     Active Substance: PREDNISOLONE
     Dosage: 20 MG (CONC:5MG)
     Route: 048
  41. PREDNISOLONE [Concomitant]
     Active Substance: PREDNISOLONE
     Dosage: 25 MG, ONCE/SINGLE (CONC:20MG)
     Route: 048
  42. TORSEMIDE [Concomitant]
     Active Substance: TORSEMIDE
     Indication: Product used for unknown indication
     Dosage: 2ML UD AMP, 40 MG(6,12,18, 24HRS CONC: 10MG/ML)
     Route: 042
  43. TACROLIMUS [Concomitant]
     Active Substance: TACROLIMUS
     Indication: Product used for unknown indication
     Dosage: 1 MG, BID (CONC:1 MG) (8 AND 20 HRS)
     Route: 048
  44. TACROLIMUS [Concomitant]
     Active Substance: TACROLIMUS
     Dosage: 2 DOSAGE FORM (CONC:2 MG) (8AND 20 HRS)
     Route: 048
  45. TACROLIMUS [Concomitant]
     Active Substance: TACROLIMUS
     Dosage: 4 MG BID (CONC:2 MG) (8AND 20 HRS)
     Route: 048
  46. ISOLAZINE [Concomitant]
     Indication: Product used for unknown indication
     Dosage: 1 DOSAGE FORM, Q8H (6,14 AND 22 HRS)
     Route: 048
  47. CEFUROXIME [Concomitant]
     Active Substance: CEFUROXIME
     Indication: Product used for unknown indication
     Dosage: 500 MG, BID (10 AND 22 HRS)
     Route: 048
  48. TELMISARTAN [Concomitant]
     Active Substance: TELMISARTAN
     Indication: Product used for unknown indication
     Dosage: 40 MG, QD (1*30)
     Route: 048
  49. TELMISARTAN [Concomitant]
     Active Substance: TELMISARTAN
     Dosage: 40 MG, QD
     Route: 048
  50. PRAZOSIN [Concomitant]
     Active Substance: PRAZOSIN
     Indication: Product used for unknown indication
     Dosage: 5 MG, BID (8 AND 20 HRS)
     Route: 048
  51. PRAZOSIN [Concomitant]
     Active Substance: PRAZOSIN
     Dosage: 5 MG
     Route: 048
  52. PRAZOSIN [Concomitant]
     Active Substance: PRAZOSIN
     Dosage: 5 MG, BID (8 AND 20 HRS)
     Route: 048
  53. CILNIDIPINE [Concomitant]
     Active Substance: CILNIDIPINE
     Indication: Product used for unknown indication
     Dosage: 1 DOSAGE FORM, Q8H (16, 14 AND 22 HRS)
     Route: 048
  54. METOPROLOL TARTRATE [Concomitant]
     Active Substance: METOPROLOL TARTRATE
     Indication: Product used for unknown indication
     Dosage: 50 MG (1*30)
     Route: 048
  55. METOPROLOL [Concomitant]
     Active Substance: METOPROLOL
     Indication: Product used for unknown indication
     Dosage: 50 MG
     Route: 048
  56. AMLODIPINE [Concomitant]
     Active Substance: AMLODIPINE BESYLATE
     Indication: Product used for unknown indication
     Dosage: 10 MG (CONC:10 MG)
     Route: 048
  57. AMLODIPINE [Concomitant]
     Active Substance: AMLODIPINE BESYLATE
     Dosage: 10 MG (CONC:10 MG)
     Route: 048
  58. AMLODIPINE [Concomitant]
     Active Substance: AMLODIPINE BESYLATE
     Dosage: 10 MG (CONC:10 MG)
     Route: 048
  59. AMLODIPINE [Concomitant]
     Active Substance: AMLODIPINE BESYLATE
     Dosage: 5 MG, Q6H (CONC:2.5MG)
     Route: 048
  60. CALCIUM CARBONATE\CHOLECALCIFEROL [Concomitant]
     Active Substance: CALCIUM CARBONATE\CHOLECALCIFEROL
     Indication: Product used for unknown indication
     Dosage: 500 MG, BID (08 AND 20 HRS)
     Route: 048
  61. METOPROLOL [Concomitant]
     Active Substance: METOPROLOL
     Indication: Product used for unknown indication
     Dosage: 1 DOSAGE FORM (CONC:50 MG)
     Route: 048
  62. METOPROLOL [Concomitant]
     Active Substance: METOPROLOL
     Dosage: 1 DOSAGE FORM, ONCE/SINGLE (CONC:50 MG)
     Route: 048
  63. METOPROLOL [Concomitant]
     Active Substance: METOPROLOL
     Dosage: 1 DOSAGE FORM, ONCE/SINGLE (CONC:50 MG)
     Route: 048
  64. ONDANSETRON HYDROCHLORIDE [Concomitant]
     Active Substance: ONDANSETRON HYDROCHLORIDE
     Indication: Product used for unknown indication
     Dosage: (2ML UD AMP INJ 4 MG Q8H 16,14AND 22 HRS) (CONC :2MG/2ML)
     Route: 042
  65. DUOLIN [Concomitant]
     Indication: Product used for unknown indication
     Dosage: 1 RESPULE , Q8H (6,14 AND 22 HRS)
     Route: 055
  66. DUOLIN [Concomitant]
     Dosage: 1 RESPULE (6,14 AND 22 HRS)
     Route: 055
  67. BUDESONIDE [Concomitant]
     Active Substance: BUDESONIDE
     Indication: Product used for unknown indication
     Dosage: UNK(1*5, 1 PACK)
     Route: 055
  68. PLASMA-LYTE A [Concomitant]
     Active Substance: MAGNESIUM CHLORIDE\POTASSIUM CHLORIDE\SODIUM ACETATE\SODIUM CHLORIDE\SODIUM GLUCONATE
     Indication: Product used for unknown indication
     Dosage: UNK (2 BOTTLES) (CONC:1000 ML)
     Route: 042
  69. PLASMA-LYTE A [Concomitant]
     Active Substance: MAGNESIUM CHLORIDE\POTASSIUM CHLORIDE\SODIUM ACETATE\SODIUM CHLORIDE\SODIUM GLUCONATE
     Dosage: UNK ( CONC: 2000 ML)
     Route: 042
  70. PAN [Concomitant]
     Indication: Product used for unknown indication
     Dosage: 40 MG, QD (1*15) (CONC :40 MG)
     Route: 048
  71. PAN [Concomitant]
     Dosage: 2 DOSAGE FORM, QD (CONC :40 MG)
     Route: 048
  72. PAN [Concomitant]
     Dosage: 40 MG, Q6H (1*15) (CONC :40 MG)
     Route: 048
  73. PAN [Concomitant]
     Dosage: UNK, QD (CONC :40 MG)(BEFORE BREAKFAST)
     Route: 048
  74. ZOLPIDEM TARTRATE [Concomitant]
     Active Substance: ZOLPIDEM TARTRATE
     Indication: Product used for unknown indication
     Dosage: 10 MG (1*5)
     Route: 048
  75. PERFALGAN [Concomitant]
     Active Substance: ACETAMINOPHEN
     Indication: Product used for unknown indication
     Dosage: 1GM INJ VIAL 1GM Q6H (6,12,18, 24 HRS)
     Route: 042
  76. SODIUM CHLORIDE [Concomitant]
     Active Substance: SODIUM CHLORIDE
     Indication: Product used for unknown indication
     Dosage: 1000ML 2 BOTTLES
     Route: 042
  77. SODIUM CHLORIDE [Concomitant]
     Active Substance: SODIUM CHLORIDE
     Dosage: 1000 ML 5 BOTTLES
     Route: 042
  78. SODIUM CHLORIDE [Concomitant]
     Active Substance: SODIUM CHLORIDE
     Dosage: 1000 ML 7 BOTTLES
     Route: 042
  79. SODIUM CHLORIDE [Concomitant]
     Active Substance: SODIUM CHLORIDE
     Dosage: 1000 ML 10 BOTTLES
     Route: 042
  80. METOCLOPRAMIDE [Concomitant]
     Active Substance: METOCLOPRAMIDE
     Indication: Product used for unknown indication
     Dosage: 2ML UD AMP INJ 10MG/2ML BID (8 +20 HRS) CONC: 5MG/ML
     Route: 042
  81. METOCLOPRAMIDE [Concomitant]
     Active Substance: METOCLOPRAMIDE
     Indication: Product used for unknown indication
     Dosage: 10 MG (2 TABS CONC: 10 MG)
     Route: 048
  82. ALPRAZOLAM [Concomitant]
     Active Substance: ALPRAZOLAM
     Indication: Product used for unknown indication
     Dosage: 0.25 MG
     Route: 048
  83. CLONAZEPAM [Concomitant]
     Active Substance: CLONAZEPAM
     Indication: Product used for unknown indication
     Dosage: 0.5 MG (ONE TIME ONLY)
     Route: 048
  84. VOLINI [Concomitant]
     Indication: Product used for unknown indication
     Dosage: (1 SPRAY NOW)
     Route: 065
  85. TORSEMIDE [Concomitant]
     Active Substance: TORSEMIDE
     Indication: Product used for unknown indication
     Dosage: 1 DOSAGE FORM, BID (10 AND 22 HRS)
     Route: 065
  86. DOMPERIDONE [Concomitant]
     Active Substance: DOMPERIDONE
     Indication: Product used for unknown indication
     Dosage: 1 DOSAGE FORM, Q8H (6,14 AND 22 HRS)
     Route: 048
  87. FOLVITE [Concomitant]
     Active Substance: FOLIC ACID
     Indication: Product used for unknown indication
     Dosage: 1 DOSAGE FORM, Q6H (1*45)
     Route: 048
  88. CEFTUM [Concomitant]
     Indication: Product used for unknown indication
     Dosage: UNK, BID (FOR 5 DAYS)
     Route: 065
  89. PREDNISOLONE [Concomitant]
     Active Substance: PREDNISOLONE
     Indication: Product used for unknown indication
     Dosage: UNK, QD (AFTER BREAKFAST)
     Route: 065
  90. DOLO [Concomitant]
     Indication: Product used for unknown indication
     Dosage: UNK, TID (DAILY FOR 7 DAYS AND THEN SOS)
     Route: 048
  91. CARCA [Concomitant]
     Indication: Product used for unknown indication
     Dosage: UNK, QD
     Route: 065
  92. LAPINE T-LYMPHOCYTE IMMUNE GLOBULIN [Concomitant]
     Active Substance: LAPINE T-LYMPHOCYTE IMMUNE GLOBULIN
     Indication: Product used for unknown indication
     Dosage: 50 MG, QD IV STAT (CONC : 25 MG)
     Route: 042
  93. LAPINE T-LYMPHOCYTE IMMUNE GLOBULIN [Concomitant]
     Active Substance: LAPINE T-LYMPHOCYTE IMMUNE GLOBULIN
     Dosage: 25 MG, BID IV STAT (CONC: 25 MG)
     Route: 042
  94. LAPINE T-LYMPHOCYTE IMMUNE GLOBULIN [Concomitant]
     Active Substance: LAPINE T-LYMPHOCYTE IMMUNE GLOBULIN
     Dosage: 25 MG, BID IV STAT (CONC: 25 MG)
     Route: 042
  95. PHENIRAMINE [Concomitant]
     Active Substance: PHENIRAMINE
     Indication: Product used for unknown indication
     Dosage: (2ML UD AMP 22.75MG/ML)
     Route: 042
  96. HYDROCORTISONE [Concomitant]
     Active Substance: HYDROCORTISONE
     Indication: Product used for unknown indication
     Dosage: (100MG/1 VIAL)
     Route: 042
  97. CREMAFFIN PLUS [Concomitant]
     Indication: Product used for unknown indication
     Dosage: 225 ML
     Route: 048
  98. SEPTRA DS [Concomitant]
     Active Substance: SULFAMETHOXAZOLE\TRIMETHOPRIM
     Indication: Product used for unknown indication
     Dosage: UNK, QD (1/2 TAB)
     Route: 065
  99. VALGANCICLOVIR [Concomitant]
     Active Substance: VALGANCICLOVIR
     Indication: Product used for unknown indication
     Dosage: UNK, Q2W (TWICE IN A WEEK)
     Route: 065
  100. METOLAR [Concomitant]
     Indication: Product used for unknown indication
     Dosage: UNK, BID (TWICE A DAY 9AM 9 PM)
     Route: 065
  101. GEROZAC [Concomitant]
     Indication: Product used for unknown indication
     Dosage: 1 DOSAGE FORM, BID (BEFORE LUNCH AND DINNER)
     Route: 065
  102. TRANEXAMIC ACID [Concomitant]
     Active Substance: TRANEXAMIC ACID
     Indication: Product used for unknown indication
     Dosage: (FOR BLEEDING FROM ANY SITE) SOS
     Route: 065
  103. ENEMA (SODIUM PHOSPHATE, DIBASIC\SODIUM PHOSPHATE, MONOBASIC) [Concomitant]
     Active Substance: SODIUM PHOSPHATE, DIBASIC\SODIUM PHOSPHATE, MONOBASIC
     Indication: Product used for unknown indication
     Dosage: 1 RTL
     Route: 065

REACTIONS (9)
  - Kidney transplant rejection [Not Recovered/Not Resolved]
  - Transplant dysfunction [Unknown]
  - Renal tubular necrosis [Unknown]
  - Total lung capacity increased [Unknown]
  - Anaemia [Unknown]
  - Bacterial infection [Unknown]
  - Therapy non-responder [Unknown]
  - Pyrexia [Unknown]
  - Pulmonary oedema [Unknown]

NARRATIVE: CASE EVENT DATE: 20200704
